FAERS Safety Report 4358948-2 (Version None)
Quarter: 2004Q2

REPORT INFORMATION
  Report Type: 
  Country: None (occurrence: None)
  Receive Date: 20040512
  Receipt Date: 20040429
  Transmission Date: 20050107
  Serious: Yes (Other)
  Sender: FDA-Public Use
  Company Number: USA040466188

PATIENT
  Age: 48 Year
  Sex: Female

DRUGS (5)
  1. XIGRIS [Suspect]
     Indication: POST PROCEDURAL COMPLICATION
     Dosage: 24 UG/KG/HR
     Dates: start: 20040426, end: 20040428
  2. XIGRIS [Suspect]
     Indication: SEPSIS
     Dosage: 24 UG/KG/HR
     Dates: start: 20040426, end: 20040428
  3. DOPAMINE HCL [Concomitant]
  4. DOBUTAMINE [Concomitant]
  5. EPINEPHRINE [Concomitant]

REACTIONS (8)
  - ACTIVATED PARTIAL THROMBOPLASTIN TIME PROLONGED [None]
  - CONDITION AGGRAVATED [None]
  - GASTROINTESTINAL HAEMORRHAGE [None]
  - HAEMATOCRIT DECREASED [None]
  - HAEMOGLOBIN DECREASED [None]
  - PLATELET COUNT DECREASED [None]
  - PROTHROMBIN TIME PROLONGED [None]
  - RENAL FAILURE [None]
